FAERS Safety Report 22056441 (Version 1)
Quarter: 2023Q1

REPORT INFORMATION
  Report Type: Spontaneous
  Country: US (occurrence: US)
  Receive Date: 20230302
  Receipt Date: 20230302
  Transmission Date: 20230418
  Serious: No
  Sender: FDA-Public Use
  Company Number: US-NOVOPROD-963687

PATIENT
  Sex: Female

DRUGS (1)
  1. VICTOZA [Suspect]
     Active Substance: LIRAGLUTIDE
     Indication: Product used for unknown indication
     Dosage: 1.2MG
     Route: 058

REACTIONS (4)
  - Dry eye [Unknown]
  - Onychomadesis [Unknown]
  - Blood glucose increased [Unknown]
  - Rash pruritic [Unknown]
